FAERS Safety Report 8078929-5 (Version None)
Quarter: 2012Q1

REPORT INFORMATION
  Report Type: 
  Country: None (occurrence: None)
  Receive Date: 20120124
  Receipt Date: 20120109
  Transmission Date: 20120608
  Serious: Yes (Death)
  Sender: FDA-Public Use
  Company Number: DSA_81747_2006

PATIENT
  Age: 51 Year
  Sex: Female

DRUGS (14)
  1. NARCOTICS, PSYCHODYSLEPTICS, AND OTHER UNSPECIFIED MEDICATIONS [Suspect]
     Indication: PRODUCT USED FOR UNKNOWN INDICATION
     Dates: end: 20060409
  2. SEROQUEL [Concomitant]
  3. ACTONEL [Concomitant]
  4. TIZANIDINE HCL [Concomitant]
  5. PRILOSEC [Concomitant]
  6. CELEBREX [Concomitant]
  7. XYREM [Suspect]
     Indication: PAIN
     Dosage: 3 GM (3 GM, 1 IN 1 D), ORAL
     Route: 048
     Dates: start: 20060314, end: 20060409
  8. XYREM [Suspect]
     Indication: INSOMNIA
     Dosage: 3 GM (3 GM, 1 IN 1 D), ORAL
     Route: 048
     Dates: start: 20060314, end: 20060409
  9. TEGRETOL [Concomitant]
  10. OPIODS [Suspect]
     Indication: PRODUCT USED FOR UNKNOWN INDICATION
     Dates: end: 20060409
  11. DEPAKOTE [Concomitant]
  12. CYMBALTA [Concomitant]
  13. OXYCONTIN [Suspect]
     Indication: PRODUCT USED FOR UNKNOWN INDICATION
     Dosage: 150 MG (15 MG, 10 IN 1 D), ORAL
     Route: 048
  14. NEURONTIN [Concomitant]

REACTIONS (2)
  - ACCIDENTAL POISONING [None]
  - OVERDOSE [None]
